FAERS Safety Report 15904441 (Version 3)
Quarter: 2019Q1

REPORT INFORMATION
  Report Type: Spontaneous
  Country: DE (occurrence: DE)
  Receive Date: 20190204
  Receipt Date: 20190222
  Transmission Date: 20190417
  Serious: Yes (Hospitalization, Other)
  Sender: FDA-Public Use
  Company Number: DE-ROCHE-2256888

PATIENT
  Sex: Female

DRUGS (6)
  1. SEEBRI [Concomitant]
     Active Substance: GLYCOPYRROLATE
     Indication: ASTHMA
     Route: 055
  2. PANTOPRAZOL [Concomitant]
     Active Substance: PANTOPRAZOLE SODIUM
     Indication: GASTROOESOPHAGEAL REFLUX DISEASE
     Route: 048
  3. XOLAIR [Suspect]
     Active Substance: OMALIZUMAB
     Indication: ASTHMA
     Route: 058
     Dates: start: 2013, end: 2016
  4. XOLAIR [Suspect]
     Active Substance: OMALIZUMAB
     Dosage: 4 DF
     Route: 065
     Dates: start: 201810
  5. FOSTER (GERMANY) [Concomitant]
     Indication: ASTHMA
     Dosage: PUFFS
     Route: 055
  6. RUPATADINA [Concomitant]
     Indication: PRODUCT USED FOR UNKNOWN INDICATION
     Route: 048

REACTIONS (4)
  - Drug ineffective [Unknown]
  - Hypersensitivity [Recovering/Resolving]
  - Anaphylactic reaction [Not Recovered/Not Resolved]
  - General physical health deterioration [Unknown]
